FAERS Safety Report 13157962 (Version 1)
Quarter: 2017Q1

REPORT INFORMATION
  Report Type: Spontaneous
  Country: US (occurrence: US)
  Receive Date: 20170124
  Receipt Date: 20170124
  Transmission Date: 20170428
  Serious: Yes (Other)
  Sender: FDA-Public Use
  Company Number: None

PATIENT
  Age: 32 Year
  Sex: Female
  Weight: 63 kg

DRUGS (7)
  1. DEXTROAMPHET SACCHARAT, AMPHET ASPARTATE, DEXTROAMPHET SULFATE AND AMPHET SULFAT [Suspect]
     Active Substance: AMPHETAMINE ASPARTATE\AMPHETAMINE SULFATE\DEXTROAMPHETAMINE SACCHARATE\DEXTROAMPHETAMINE SULFATE
     Indication: ATTENTION DEFICIT/HYPERACTIVITY DISORDER
     Dosage: ?          QUANTITY:60 TABLET(S);?
     Route: 048
     Dates: start: 20170120, end: 20170122
  2. B6 [Concomitant]
     Active Substance: PYRIDOXINE HYDROCHLORIDE
  3. DIALY WOMEN^S MULTIVITAMIN [Concomitant]
  4. ZINC. [Concomitant]
     Active Substance: ZINC
  5. CLONIDINE. [Concomitant]
     Active Substance: CLONIDINE
  6. IRON [Concomitant]
     Active Substance: IRON
  7. MAGNESIUM [Concomitant]
     Active Substance: MAGNESIUM

REACTIONS (5)
  - Drug ineffective [None]
  - Product substitution issue [None]
  - Headache [None]
  - Abdominal pain upper [None]
  - Withdrawal syndrome [None]

NARRATIVE: CASE EVENT DATE: 20170120
